FAERS Safety Report 5411179-7 (Version None)
Quarter: 2007Q3

REPORT INFORMATION
  Report Type: 
  Country: None (occurrence: None)
  Receive Date: 20070810
  Receipt Date: 20070806
  Transmission Date: 20080115
  Serious: Yes (Hospitalization)
  Sender: FDA-Public Use
  Company Number: A0668408A

PATIENT
  Age: 71 Year
  Sex: Female

DRUGS (18)
  1. TYKERB [Suspect]
     Indication: BREAST CANCER
     Dosage: 1250MG PER DAY
     Route: 048
     Dates: start: 20070401
  2. ADVAIR DISKUS 100/50 [Suspect]
     Indication: ASTHMA
     Dosage: 1PUFF TWICE PER DAY
     Route: 055
     Dates: start: 20060101, end: 20060101
  3. GEMZAR [Suspect]
  4. SUCRALFATE [Concomitant]
  5. PROTONIX [Concomitant]
  6. GLYCOLAX [Concomitant]
  7. XOPENEX [Concomitant]
  8. PULMICORT [Concomitant]
  9. FORMOTEROL FUMARATE [Concomitant]
  10. SINGULAIR [Concomitant]
  11. CLONAZEPAM [Concomitant]
  12. HYZAAR [Concomitant]
  13. NORVASC [Concomitant]
  14. LANOXIN [Concomitant]
  15. OXYCODONE HCL [Concomitant]
  16. OXYCONTIN [Concomitant]
  17. ONDANSETRON [Concomitant]
  18. XANAX [Concomitant]

REACTIONS (7)
  - CHEST DISCOMFORT [None]
  - DRUG DISPENSING ERROR [None]
  - DRUG INEFFECTIVE [None]
  - DYSPNOEA [None]
  - NAUSEA [None]
  - PHARMACEUTICAL PRODUCT COMPLAINT [None]
  - PYREXIA [None]
